FAERS Safety Report 20247333 (Version 1)
Quarter: 2021Q4

REPORT INFORMATION
  Report Type: Spontaneous
  Country: US (occurrence: None)
  Receive Date: 20211228
  Receipt Date: 20211228
  Transmission Date: 20220303
  Serious: Yes (Other)
  Sender: FDA-Public Use
  Company Number: None

PATIENT
  Age: 34 Year
  Sex: Female
  Weight: 54.0 kg

DRUGS (1)
  1. HIZENTRA [Suspect]
     Active Substance: HUMAN IMMUNOGLOBULIN G
     Indication: Chronic inflammatory demyelinating polyradiculoneuropathy
     Dosage: FREQUENCY : TWICE A WEEK;?
     Route: 058
     Dates: start: 20200214

REACTIONS (6)
  - Injection site urticaria [None]
  - Injection site warmth [None]
  - Injection site swelling [None]
  - Injection site pruritus [None]
  - Product quality issue [None]
  - Product quality issue [None]

NARRATIVE: CASE EVENT DATE: 20211120
